FAERS Safety Report 10157846 (Version 1)
Quarter: 2014Q2

REPORT INFORMATION
  Report Type: Spontaneous
  Country: US (occurrence: US)
  Receive Date: 20140507
  Receipt Date: 20140507
  Transmission Date: 20141212
  Serious: No
  Sender: FDA-Public Use
  Company Number: US-009507513-2012SP011974

PATIENT
  Age: 11 Year
  Sex: Female
  Weight: 34.2 kg

DRUGS (3)
  1. CLARITIN ORAL SOLUTION [Suspect]
     Indication: ALLERGY TO ANIMAL
     Dosage: UNK UNK, PRN
     Route: 048
  2. CLARITIN ORAL SOLUTION [Suspect]
     Dosage: 5 MG, ONCE
     Route: 048
     Dates: start: 20120226
  3. CLARITIN ORAL SOLUTION [Suspect]
     Dosage: 5 MG, ONCE
     Route: 048
     Dates: start: 20120226

REACTIONS (1)
  - Overdose [Not Recovered/Not Resolved]
